FAERS Safety Report 5894018-X (Version None)
Quarter: 2008Q3

REPORT INFORMATION
  Report Type: 
  Country: None (occurrence: None)
  Receive Date: 20080923
  Receipt Date: 20080423
  Transmission Date: 20090109
  Serious: No
  Sender: FDA-Public Use
  Company Number: US-B.I. PHARMACEUTICALS,INC./RIDGEFIELD-2008-BP-06361BP

PATIENT
  Sex: Female

DRUGS (4)
  1. MICARDIS [Suspect]
     Dates: start: 20080319
  2. VIT E [Concomitant]
  3. ATENOLOL [Concomitant]
  4. GLUCOSAMINE-CHONDROITIN+MSM [Concomitant]

REACTIONS (6)
  - BACK PAIN [None]
  - BLOOD PRESSURE INCREASED [None]
  - DIZZINESS [None]
  - FATIGUE [None]
  - HEADACHE [None]
  - VISION BLURRED [None]
